FAERS Safety Report 4876111-3 (Version None)
Quarter: 2006Q1

REPORT INFORMATION
  Report Type: 
  Country: None (occurrence: None)
  Receive Date: 20060106
  Receipt Date: 20060106
  Transmission Date: 20060701
  Serious: Yes (Hospitalization)
  Sender: FDA-Public Use
  Company Number: None

PATIENT
  Age: 68 Year
  Sex: Female
  Weight: 49.4421 kg

DRUGS (13)
  1. CETUXIMAB [Suspect]
     Indication: NEOPLASM MALIGNANT
     Dosage: 400MG/M2 - 580MG  (X 1 DOSE) IV
     Route: 042
     Dates: start: 20051031
  2. CETUXIMAB [Suspect]
     Dosage: 250MG/M2 - 350MG IV
     Route: 042
     Dates: start: 20051107
  3. CETUXIMAB [Suspect]
     Dosage: 250MG/M2 - 350MG IV
     Route: 042
     Dates: start: 20051114
  4. CETUXIMAB [Suspect]
     Dosage: 250MG/M2 - 350MG IV
     Route: 042
     Dates: start: 20051121
  5. CETUXIMAB [Suspect]
     Dosage: 250MG/M2 - 350MG IV
     Route: 042
     Dates: start: 20051212
  6. CETUXIMAB [Suspect]
     Dosage: 250MG/M2 - 350MG IV
     Route: 042
     Dates: start: 20051219
  7. CETUXIMAB [Suspect]
     Dosage: 250MG/M2 - 350MG IV
     Route: 042
     Dates: start: 20051227
  8. PACLITAXEL [Suspect]
     Dosage: 40 MG/M2 - 56MG IV
     Route: 042
     Dates: start: 20051212
  9. PACLITAXEL [Suspect]
     Dosage: 40 MG/M2 - 56MG IV
     Route: 042
     Dates: start: 20051219
  10. PACLITAXEL [Suspect]
     Dosage: 40 MG/M2 - 56MG IV
     Route: 042
     Dates: start: 20051227
  11. CARBOPLATIN [Suspect]
     Dosage: AUC 1 - 155MG IV
     Route: 042
     Dates: start: 20051212
  12. CARBOPLATIN [Suspect]
     Dosage: AUC 1 - 155MG IV
     Route: 042
     Dates: start: 20051219
  13. CARBOPLATIN [Suspect]
     Dosage: AUC 1 - 155MG IV
     Route: 042
     Dates: start: 20051227

REACTIONS (10)
  - ABDOMINAL PAIN [None]
  - BACTERIA STOOL IDENTIFIED [None]
  - CLOSTRIDIAL INFECTION [None]
  - DEHYDRATION [None]
  - HYPOKALAEMIA [None]
  - HYPOMAGNESAEMIA [None]
  - NAUSEA [None]
  - PAIN [None]
  - PYREXIA [None]
  - VOMITING [None]
